FAERS Safety Report 11154995 (Version 6)
Quarter: 2015Q3

REPORT INFORMATION
  Report Type: Report from Study
  Country: GB (occurrence: GB)
  Receive Date: 20150602
  Receipt Date: 20150902
  Transmission Date: 20151125
  Serious: Yes (Hospitalization)
  Sender: FDA-Public Use
  Company Number: GB-ROCHE-1584299

PATIENT
  Age: 68 Year
  Sex: Male

DRUGS (6)
  1. BEVACIZUMAB [Suspect]
     Active Substance: BEVACIZUMAB
     Dosage: DATE OF LAST DOSE PRIOR TO SAE 07/OCT/2014
     Route: 042
     Dates: start: 20140624
  2. BEVACIZUMAB [Suspect]
     Active Substance: BEVACIZUMAB
     Dosage: LAST DOSE PRIOR TO SAE: 12/NOV/2014
     Route: 042
     Dates: start: 20141112
  3. OXALIPLATIN. [Concomitant]
     Active Substance: OXALIPLATIN
  4. CAPECITABINE. [Concomitant]
     Active Substance: CAPECITABINE
  5. CAPOX [Concomitant]
     Indication: CHEMOTHERAPY
  6. BEVACIZUMAB [Suspect]
     Active Substance: BEVACIZUMAB
     Indication: COLORECTAL CANCER METASTATIC
     Dosage: LAST DOSE PRIOT TO SAE: 07/OCT/2014
     Route: 042
     Dates: start: 20141007

REACTIONS (1)
  - Peripheral swelling [Recovered/Resolved]

NARRATIVE: CASE EVENT DATE: 20141108
